FAERS Safety Report 4302323-3 (Version None)
Quarter: 2004Q1

REPORT INFORMATION
  Report Type: 
  Country: None (occurrence: None)
  Receive Date: 20040223
  Receipt Date: 20040211
  Transmission Date: 20041129
  Serious: Yes (Life-Threatening, Hospitalization)
  Sender: FDA-Public Use
  Company Number: WAES 0402NLD00008

PATIENT
  Age: 96 Year
  Sex: Female

DRUGS (5)
  1. ACETAMINOPHEN [Concomitant]
     Indication: LOCALISED OSTEOARTHRITIS
     Route: 054
     Dates: start: 20011120
  2. ACETAMINOPHEN [Concomitant]
     Route: 048
  3. ASPIRIN CALCIUM [Concomitant]
     Indication: TRANSIENT ISCHAEMIC ATTACK
     Route: 048
     Dates: start: 19991104, end: 20030324
  4. BUMETANIDE [Concomitant]
     Indication: HYPERTENSION
     Route: 048
     Dates: start: 19991104
  5. VIOXX [Suspect]
     Indication: LOCALISED OSTEOARTHRITIS
     Route: 048
     Dates: start: 20020128, end: 20030324

REACTIONS (8)
  - BLOOD CREATININE INCREASED [None]
  - BLOOD PRESSURE DIASTOLIC DECREASED [None]
  - BLOOD UREA INCREASED [None]
  - DUODENITIS [None]
  - GASTRITIS [None]
  - MALAISE [None]
  - MELAENA [None]
  - WHITE BLOOD CELL COUNT INCREASED [None]
